FAERS Safety Report 24616925 (Version 1)
Quarter: 2024Q4

REPORT INFORMATION
  Report Type: Spontaneous
  Country: FR (occurrence: FR)
  Receive Date: 20241114
  Receipt Date: 20241114
  Transmission Date: 20250115
  Serious: Yes (Hospitalization, Other)
  Sender: SANOFI AVENTIS
  Company Number: None

PATIENT
  Age: 51 Year
  Sex: Male
  Weight: 99 kg

DRUGS (2)
  1. LOVENOX [Suspect]
     Active Substance: ENOXAPARIN SODIUM
     Indication: Thrombosis prophylaxis
     Dosage: 4000 IU, QD
     Route: 058
     Dates: start: 20240701, end: 20240709
  2. HEPARIN SODIUM [Suspect]
     Active Substance: HEPARIN SODIUM
     Indication: Thrombosis prophylaxis
     Dosage: UNK
     Route: 042
     Dates: start: 20240701, end: 20240701

REACTIONS (2)
  - Cardiac ventricular thrombosis [Recovering/Resolving]
  - Heparin-induced thrombocytopenia [Recovered/Resolved]

NARRATIVE: CASE EVENT DATE: 20240710
